FAERS Safety Report 5812283-1 (Version None)
Quarter: 2008Q3

REPORT INFORMATION
  Report Type: 
  Country: None (occurrence: None)
  Receive Date: 20080714
  Receipt Date: 20080627
  Transmission Date: 20090109
  Serious: Yes (Death)
  Sender: FDA-Public Use
  Company Number: 2008BI017270

PATIENT

DRUGS (5)
  1. ZEVALIN [Suspect]
     Indication: B-CELL LYMPHOMA RECURRENT
  2. ZEVALIN [Suspect]
     Indication: B-CELL LYMPHOMA REFRACTORY
  3. RITUXIMAB [Concomitant]
  4. CYCLOPHOSPHAMIDE [Concomitant]
  5. FILGRASTIM [Concomitant]

REACTIONS (1)
  - INFECTION [None]
